FAERS Safety Report 20796264 (Version 1)
Quarter: 2022Q2

REPORT INFORMATION
  Report Type: Spontaneous
  Country: FR (occurrence: FR)
  Receive Date: 20220506
  Receipt Date: 20220506
  Transmission Date: 20220721
  Serious: Yes (Hospitalization, Other)
  Sender: FDA-Public Use
  Company Number: None

PATIENT
  Age: 57 Year
  Sex: Female
  Weight: 76.5 kg

DRUGS (12)
  1. ATORVASTATIN [Suspect]
     Active Substance: ATORVASTATIN
     Indication: Hypercholesterolaemia
     Dosage: UNIT DOSE: 20 MG, FREQUENCY TIME : 24 HRS
     Route: 048
     Dates: end: 20220219
  2. ATORVASTATIN [Suspect]
     Active Substance: ATORVASTATIN
     Dosage: FOLLOWING HOSPITALIZATION FOR ST- ACS, CARDIOLOGISTS INCREASED ATORVASTATIN DOSAGE, UNIT DOSE: 80 MG
     Route: 048
     Dates: start: 20220219, end: 20220406
  3. CYCLOSPORINE [Suspect]
     Active Substance: CYCLOSPORINE
     Indication: Renal transplant
     Dosage: 150 MILLIGRAM DAILY; 75 MG MORNING AND EVENING,
  4. ALLOPURINOL [Concomitant]
     Active Substance: ALLOPURINOL
     Dosage: 100 MILLIGRAM DAILY; 1 TABLET IN THE MORNING
  5. BACTRIM [Concomitant]
     Active Substance: SULFAMETHOXAZOLE\TRIMETHOPRIM
     Dosage: IN THE MORNING, MONDAY/WEDNESDAY/FRIDAY, UNIT DOSE: 400 MG
     Route: 048
     Dates: start: 20220221
  6. ARANESP [Concomitant]
     Active Substance: DARBEPOETIN ALFA
     Dosage: EVERY FRIDAY, UNIT DOSE: 60 MICROGRAM, STRENGTH: 60 MICROGRAM, FREQUENCY TIME 1 WEEK
     Route: 058
     Dates: start: 20220225
  7. PREDNISONE [Concomitant]
     Active Substance: PREDNISONE
     Indication: Complications of transplanted kidney
     Dosage: 5 MILLIGRAM DAILY; 1 TABLET IN THE MORNING
     Route: 048
  8. LANSOPRAZOLE [Concomitant]
     Active Substance: LANSOPRAZOLE
     Dosage: THE EVENING, UNIT DOSE: 15 MG, FREQUENCY TIME : 24 HRS
     Route: 048
  9. AMLODIPINE BESYLATE [Concomitant]
     Active Substance: AMLODIPINE BESYLATE
     Indication: Hypertension
     Dosage: THE MORNING, FREQUENCY TIME : 24 HRS, UNIT DOSE: 5 MG, STRENGTH :5 MG
     Dates: start: 20220219
  10. KARDEGIC [Concomitant]
     Active Substance: ASPIRIN DL-LYSINE
     Indication: Acute coronary syndrome
     Dosage: THE MORNING, POWDER FOR ORAL SOLUTION IN SACHET-DOSE, UNIT DOSE: 75 MG, FREQUENCY TIME : 24 HRS, STR
     Route: 048
     Dates: start: 20220219
  11. BISOPROLOL [Concomitant]
     Active Substance: BISOPROLOL
     Dosage: THE MORNING, FREQUENCY TIME : 24 HRS, UNIT DOSE: 2.5 MG, STRENGTH: 2.5 MG
     Dates: start: 20220219
  12. TICAGRELOR [Concomitant]
     Active Substance: TICAGRELOR
     Indication: Acute coronary syndrome
     Dosage: 180 MILLIGRAM DAILY; MORNING AND EVENING, STRENGTH: 90 MG, UNIT DOSE: 90 MG, FREQUENCY : 12 HOURS
     Route: 048
     Dates: start: 20220219

REACTIONS (9)
  - Rhabdomyolysis [Not Recovered/Not Resolved]
  - Vomiting [Not Recovered/Not Resolved]
  - Acute kidney injury [Not Recovered/Not Resolved]
  - Hyperkalaemia [Not Recovered/Not Resolved]
  - Hepatocellular injury [Not Recovered/Not Resolved]
  - Micturition disorder [Not Recovered/Not Resolved]
  - Metabolic acidosis [Not Recovered/Not Resolved]
  - Hypotension [Not Recovered/Not Resolved]
  - Constipation [Not Recovered/Not Resolved]

NARRATIVE: CASE EVENT DATE: 20220323
